FAERS Safety Report 23566403 (Version 1)
Quarter: 2024Q1

REPORT INFORMATION
  Report Type: Report from Study
  Country: TW (occurrence: None)
  Receive Date: 20240226
  Receipt Date: 20240226
  Transmission Date: 20240410
  Serious: Yes (Death)
  Sender: FDA-Public Use
  Company Number: 2024A046206

PATIENT
  Age: 16443 Day
  Sex: Male

DRUGS (1)
  1. IMFINZI [Suspect]
     Active Substance: DURVALUMAB
     Dosage: 720.0MG UNKNOWN
     Route: 042
     Dates: start: 20230830, end: 20231225

REACTIONS (2)
  - Multiple organ dysfunction syndrome [Fatal]
  - Coma [Fatal]

NARRATIVE: CASE EVENT DATE: 20240108
